FAERS Safety Report 19651495 (Version 2)
Quarter: 2022Q3

REPORT INFORMATION
  Report Type: Report from Study
  Country: GB (occurrence: GB)
  Receive Date: 20210803
  Receipt Date: 20220809
  Transmission Date: 20221027
  Serious: Yes (Hospitalization, Other)
  Sender: FDA-Public Use
  Company Number: GB-ROCHE-2551369

PATIENT
  Age: 63 Year
  Sex: Female

DRUGS (41)
  1. DOCETAXEL [Suspect]
     Active Substance: DOCETAXEL
     Indication: Breast cancer
     Dosage: 108 MILLIGRAM, Q3W (6 CYCLES)
     Route: 042
     Dates: start: 20170825, end: 20170915
  2. DOCETAXEL [Suspect]
     Active Substance: DOCETAXEL
     Dosage: 96 MILLIGRAM, Q3W (5 CYCLES)
     Route: 042
     Dates: start: 20170915, end: 20171208
  3. EXEMESTANE [Suspect]
     Active Substance: EXEMESTANE
     Indication: Breast cancer
     Dosage: 25 MILLIGRAM, QD
     Route: 048
     Dates: start: 20180209
  4. TRASTUZUMAB [Suspect]
     Active Substance: TRASTUZUMAB
     Indication: Breast cancer
     Dosage: 630 MILLIGRAM, Q3W
     Route: 042
     Dates: start: 20170825, end: 20170825
  5. TRASTUZUMAB [Suspect]
     Active Substance: TRASTUZUMAB
     Dosage: 483 MILLIGRAM, Q3W
     Route: 042
     Dates: start: 20170915, end: 20180209
  6. TRASTUZUMAB [Suspect]
     Active Substance: TRASTUZUMAB
     Dosage: 504 MILLIGRAM, Q3W
     Route: 042
     Dates: start: 20180209
  7. TRASTUZUMAB [Suspect]
     Active Substance: TRASTUZUMAB
     Dosage: 420 MILLIGRAM, Q3W, LAST DOSE ADMINISTERED
     Route: 042
     Dates: start: 20211122, end: 20220321
  8. TRASTUZUMAB [Suspect]
     Active Substance: TRASTUZUMAB
     Dosage: 483 MILLIGRAM, Q3W
     Route: 042
     Dates: start: 20180209
  9. PERTUZUMAB [Suspect]
     Active Substance: PERTUZUMAB
     Indication: Breast cancer
     Dosage: 420 MILLIGRAM, Q3W
     Route: 042
     Dates: start: 20170915, end: 20180209
  10. PERTUZUMAB [Suspect]
     Active Substance: PERTUZUMAB
     Dosage: 840 MILLIGRAM, Q3W
     Route: 042
     Dates: start: 20170824, end: 20170824
  11. PERTUZUMAB [Suspect]
     Active Substance: PERTUZUMAB
     Dosage: 651 MILLIGRAM, Q3W
     Route: 042
     Dates: start: 20211111, end: 20211111
  12. CALCIUM CARBONATE\CHOLECALCIFEROL [Concomitant]
     Active Substance: CALCIUM CARBONATE\CHOLECALCIFEROL
     Dosage: 1 DOSAGE FORM, QD
     Route: 048
     Dates: start: 20170825
  13. ALENDRONIC ACID [Concomitant]
     Active Substance: ALENDRONIC ACID
     Dosage: 70 MILLIGRAM, QW
     Route: 048
  14. AMLODIPINE [Concomitant]
     Active Substance: AMLODIPINE BESYLATE
     Indication: Hypertension
     Dosage: 5 MILLIGRAM, QD
     Route: 048
  15. BISMUTH [Concomitant]
     Active Substance: BISMUTH
     Indication: Haemorrhoids
     Dosage: 1 OTHER
     Route: 061
     Dates: start: 20180504
  16. MYROXYLON BALSAMUM [Concomitant]
     Indication: Haemorrhoids
     Dosage: 1 OTHER
     Route: 061
     Dates: start: 20180504
  17. CYCLIZINE [Concomitant]
     Active Substance: CYCLIZINE
     Indication: Nausea
     Dosage: 50 MILLIGRAM
     Route: 048
     Dates: start: 20190718
  18. DENOSUMAB [Concomitant]
     Active Substance: DENOSUMAB
     Indication: Prophylaxis
     Dosage: 120 MILLIGRAM, MONTHLY
     Route: 058
     Dates: start: 20180706
  19. LANOLIN\LIGHT MINERAL OIL\PARAFFIN [Concomitant]
     Active Substance: LANOLIN\LIGHT MINERAL OIL\PARAFFIN
     Indication: Rash pruritic
     Dosage: 1 OTHER
     Route: 061
     Dates: start: 20180810
  20. FERROUS SULFATE [Concomitant]
     Active Substance: FERROUS SULFATE
     Indication: Anaemia
     Dosage: 200 MILLIGRAM, QD
     Route: 048
  21. IBUPROFEN [Concomitant]
     Active Substance: IBUPROFEN
     Indication: Pain
     Dosage: UNK
     Route: 048
     Dates: start: 20190718
  22. LANSOPRAZOLE [Concomitant]
     Active Substance: LANSOPRAZOLE
     Dosage: 30 MILLIGRAM
     Route: 048
  23. LOSARTAN [Concomitant]
     Active Substance: LOSARTAN
     Indication: Hypertension
     Dosage: 50 MILLIGRAM, QD
     Route: 048
  24. MENTHOL [Concomitant]
     Active Substance: MENTHOL
     Indication: Rash pruritic
     Dosage: 1 OTHER CREAM
     Route: 061
     Dates: start: 20180810
  25. NITROFURANTOIN [Concomitant]
     Active Substance: NITROFURANTOIN
     Indication: Confusional state
     Dosage: 50 MILLIGRAM, QID
     Route: 048
     Dates: start: 20210107, end: 20210112
  26. CHLORPHENIRAMINE MALEATE [Concomitant]
     Active Substance: CHLORPHENIRAMINE MALEATE
     Indication: Rash
     Dosage: UNK
     Route: 048
     Dates: start: 20180504
  27. RAMIPRIL [Concomitant]
     Active Substance: RAMIPRIL
     Indication: Hypertension
     Dosage: 2.5 MILLIGRAM, QD
     Route: 048
     Dates: start: 20180504
  28. ALBUTEROL [Concomitant]
     Active Substance: ALBUTEROL
     Dosage: 2 PUFF
     Route: 065
  29. SERTRALINE [Concomitant]
     Active Substance: SERTRALINE HYDROCHLORIDE
     Indication: Depression
     Dosage: 100 MILLIGRAM, QD
     Route: 048
  30. TINZAPARIN [Concomitant]
     Active Substance: TINZAPARIN
     Indication: Pleuritic pain
     Dosage: 4500 INTERNATIONAL UNIT, QD
     Route: 058
     Dates: start: 20190117
  31. CIPROFLOXACIN [Concomitant]
     Active Substance: CIPROFLOXACIN
     Indication: Dyspnoea
     Dosage: UNK
     Route: 065
     Dates: start: 20220622
  32. APIXABAN [Concomitant]
     Active Substance: APIXABAN
     Indication: Dyspnoea
     Dosage: UNK
     Route: 065
     Dates: start: 20220614
  33. CLOPIDOGREL [Concomitant]
     Active Substance: CLOPIDOGREL BISULFATE
     Dosage: UNK
     Route: 065
     Dates: start: 20220622
  34. CLOPIDOGREL [Concomitant]
     Active Substance: CLOPIDOGREL BISULFATE
     Dosage: UNK
     Route: 065
     Dates: start: 20220612, end: 20220628
  35. ELTROMBOPAG [Concomitant]
     Active Substance: ELTROMBOPAG
     Indication: Platelet count decreased
     Dosage: UNK
     Route: 065
     Dates: start: 20220331
  36. FUROSEMIDE [Concomitant]
     Active Substance: FUROSEMIDE
     Indication: Dyspnoea
     Dosage: UNK
     Route: 065
     Dates: start: 20220612
  37. CHLORPHENIRAMINE HYDROCHLORIDE [Concomitant]
     Active Substance: CHLORPHENIRAMINE HYDROCHLORIDE
     Indication: Confusional state
     Dosage: UNK
     Route: 048
     Dates: start: 20210107, end: 20210112
  38. PREDNISOLONE [Concomitant]
     Active Substance: PREDNISOLONE
     Indication: Platelet count decreased
     Dosage: UNK
     Route: 065
     Dates: start: 20220302, end: 20220331
  39. PREDNISOLONE [Concomitant]
     Active Substance: PREDNISOLONE
     Dosage: 15 MILLIGRAM
     Route: 065
     Dates: start: 20220414
  40. PREDNISOLONE [Concomitant]
     Active Substance: PREDNISOLONE
     Dosage: 30 MILLIGRAM
     Route: 065
     Dates: start: 20220401, end: 20220413
  41. CLARITHROMYCIN [Concomitant]
     Active Substance: CLARITHROMYCIN
     Dosage: UNK
     Route: 065

REACTIONS (4)
  - Lower respiratory tract infection [Recovered/Resolved]
  - Cough [Recovered/Resolved]
  - Dyspnoea [Recovered/Resolved]
  - COVID-19 [Recovered/Resolved]

NARRATIVE: CASE EVENT DATE: 20200121
